FAERS Safety Report 23364925 (Version 2)
Quarter: 2024Q1

REPORT INFORMATION
  Report Type: Spontaneous
  Country: US (occurrence: US)
  Receive Date: 20240104
  Receipt Date: 20240208
  Transmission Date: 20240410
  Serious: No
  Sender: FDA-Public Use
  Company Number: US-ABBVIE-5565640

PATIENT
  Age: 73 Year
  Sex: Female
  Weight: 74.842 kg

DRUGS (1)
  1. HUMIRA [Suspect]
     Active Substance: ADALIMUMAB
     Indication: Colitis ulcerative
     Dosage: FORM STRENGTH: 40 MILLIGRAM
     Route: 058
     Dates: start: 202310

REACTIONS (4)
  - Chills [Recovered/Resolved]
  - Alopecia [Recovering/Resolving]
  - Injury associated with device [Unknown]
  - Device issue [Unknown]

NARRATIVE: CASE EVENT DATE: 20231101
